FAERS Safety Report 17536273 (Version 2)
Quarter: 2020Q1

REPORT INFORMATION
  Report Type: Spontaneous
  Country: US (occurrence: US)
  Receive Date: 20200313
  Receipt Date: 20200325
  Transmission Date: 20200409
  Serious: Yes (Hospitalization, Other)
  Sender: FDA-Public Use
  Company Number: US-ASTRAZENECA-2020SE36128

PATIENT
  Age: 9 Month
  Sex: Male

DRUGS (4)
  1. SYNAGIS [Suspect]
     Active Substance: PALIVIZUMAB
     Indication: NEONATAL RESPIRATORY DISTRESS SYNDROME
     Dosage: STRENGTH: 100MG/ML AND 50MG/0.5ML. DOSE: 15MG/KG MONTHLY.?
     Route: 030
     Dates: start: 20191205
  2. SYNAGIS [Suspect]
     Active Substance: PALIVIZUMAB
     Indication: PATENT DUCTUS ARTERIOSUS
     Dosage: STRENGTH: 100MG/ML AND 50MG/0.5ML. DOSE: 15MG/KG MONTHLY.?
     Route: 030
     Dates: start: 20191205
  3. SYNAGIS [Suspect]
     Active Substance: PALIVIZUMAB
     Indication: ATRIAL SEPTAL DEFECT
     Dosage: STRENGTH: 100MG/ML AND 50MG/0.5ML. DOSE: 15MG/KG MONTHLY.?
     Route: 030
     Dates: start: 20191205
  4. SYNAGIS [Suspect]
     Active Substance: PALIVIZUMAB
     Indication: RESPIRATORY SYNCYTIAL VIRUS INFECTION
     Dosage: STRENGTH: 100MG/ML AND 50MG/0.5ML. DOSE: 15MG/KG MONTHLY.?
     Route: 030
     Dates: start: 20191205

REACTIONS (1)
  - Respiratory syncytial virus infection [Unknown]

NARRATIVE: CASE EVENT DATE: 20200229
